FAERS Safety Report 9060555 (Version 1)
Quarter: 2013Q1

REPORT INFORMATION
  Report Type: Spontaneous
  Country: US (occurrence: US)
  Receive Date: 20130212
  Receipt Date: 20130212
  Transmission Date: 20140127
  Serious: Yes (Other)
  Sender: FDA-Public Use
  Company Number: US-GILEAD-2012-0066423

PATIENT
  Sex: Male

DRUGS (1)
  1. COMPLERA [Suspect]
     Indication: HIV INFECTION
     Dosage: UNK
     Dates: start: 201206

REACTIONS (1)
  - Viral load [Unknown]
